FAERS Safety Report 24184087 (Version 1)
Quarter: 2024Q3

REPORT INFORMATION
  Report Type: Spontaneous
  Country: US (occurrence: None)
  Receive Date: 20240806
  Receipt Date: 20240806
  Transmission Date: 20241017
  Serious: Yes (Death)
  Sender: Public
  Company Number: None

PATIENT
  Age: 69 Year
  Sex: Male

DRUGS (3)
  1. TACROLIMUS [Suspect]
     Active Substance: TACROLIMUS
     Indication: Renal transplant
     Dosage: 4 MG TWICE A DAY ORAL
     Route: 048
     Dates: start: 20231114, end: 20240714
  2. SIROLIMUS [Concomitant]
     Active Substance: SIROLIMUS
     Dates: start: 20240414, end: 20240514
  3. MYCOPHENOLIC ACID [Concomitant]
     Active Substance: MYCOPHENOLIC ACID
     Dates: start: 20231114, end: 20240717

REACTIONS (1)
  - Cardiac ventricular thrombosis [None]

NARRATIVE: CASE EVENT DATE: 20240714
